FAERS Safety Report 25372606 (Version 3)
Quarter: 2025Q3

REPORT INFORMATION
  Report Type: Report from Study
  Country: EU (occurrence: EU)
  Receive Date: 20250529
  Receipt Date: 20250821
  Transmission Date: 20251021
  Serious: No
  Sender: ALEXION PHARMACEUTICALS
  Company Number: EU-ASTRAZENECA-202505GLO019568DE

PATIENT
  Age: 72 Year
  Sex: Male

DRUGS (1)
  1. ACALABRUTINIB [Suspect]
     Active Substance: ACALABRUTINIB
     Indication: Chronic lymphocytic leukaemia

REACTIONS (1)
  - Lymphatic disorder [Recovering/Resolving]

NARRATIVE: CASE EVENT DATE: 20250520
